FAERS Safety Report 7589257-6 (Version None)
Quarter: 2011Q3

REPORT INFORMATION
  Report Type: 
  Country: None (occurrence: None)
  Receive Date: 20110705
  Receipt Date: 20110620
  Transmission Date: 20111222
  Serious: Yes (Hospitalization)
  Sender: FDA-Public Use
  Company Number: US-JNJFOC-20110610117

PATIENT
  Age: 3 Decade
  Sex: Male

DRUGS (9)
  1. INVEGA SUSTENNA [Suspect]
     Route: 030
     Dates: start: 20110531, end: 20110531
  2. INVEGA SUSTENNA [Suspect]
     Indication: SCHIZOPHRENIA
     Route: 030
     Dates: start: 20110601, end: 20110601
  3. HALDOL [Suspect]
     Indication: PRODUCT USED FOR UNKNOWN INDICATION
  4. INVEGA SUSTENNA [Suspect]
     Route: 030
     Dates: start: 20110601, end: 20110601
  5. INVEGA SUSTENNA [Suspect]
     Route: 030
     Dates: start: 20110525, end: 20110525
  6. INVEGA SUSTENNA [Suspect]
     Route: 030
     Dates: start: 20110527, end: 20110527
  7. INVEGA [Suspect]
     Indication: SCHIZOPHRENIA
     Route: 048
     Dates: start: 20110602
  8. RISPERDAL [Suspect]
     Indication: PRODUCT USED FOR UNKNOWN INDICATION
     Route: 048
  9. DEPAKOTE [Concomitant]
     Route: 065
     Dates: start: 20110101

REACTIONS (5)
  - ABNORMAL BEHAVIOUR [None]
  - AGITATION [None]
  - AGGRESSION [None]
  - EXTRAPYRAMIDAL DISORDER [None]
  - DRUG INEFFECTIVE [None]
